FAERS Safety Report 21598295 (Version 2)
Quarter: 2022Q4

REPORT INFORMATION
  Report Type: Report from Study
  Country: IT (occurrence: IT)
  Receive Date: 20221115
  Receipt Date: 20221127
  Transmission Date: 20230113
  Serious: Yes (Other)
  Sender: FDA-Public Use
  Company Number: IT-ROCHE-3214537

PATIENT
  Age: 65 Year

DRUGS (2)
  1. PACLITAXEL [Suspect]
     Active Substance: PACLITAXEL
     Indication: Triple negative breast cancer
     Dosage: LAST DOSE: 25/03/2022, 100; 180 (CYCLE 5, CYCLE 6)
     Route: 065
     Dates: start: 20211022
  2. ATEZOLIZUMAB [Suspect]
     Active Substance: ATEZOLIZUMAB
     Indication: Triple negative breast cancer
     Dosage: LAST DOSE 25/MAR/2022
     Route: 065
     Dates: start: 20211022

REACTIONS (4)
  - Nausea [Recovered/Resolved]
  - Alopecia [Recovered/Resolved]
  - Asthenia [Not Recovered/Not Resolved]
  - Abdominal infection [Recovered/Resolved]

NARRATIVE: CASE EVENT DATE: 20211117
